FAERS Safety Report 5134354-8 (Version None)
Quarter: 2006Q4

REPORT INFORMATION
  Report Type: 
  Country: None (occurrence: None)
  Receive Date: 20061025
  Receipt Date: 20061016
  Transmission Date: 20070319
  Serious: Yes (Other)
  Sender: FDA-Public Use
  Company Number: DK-JNJFOC-20061000701

PATIENT
  Age: 35 Year
  Sex: Female
  Weight: 92 kg

DRUGS (4)
  1. REMICADE [Suspect]
     Route: 042
  2. REMICADE [Suspect]
     Indication: RHEUMATOID ARTHRITIS
     Route: 042
  3. METHOTREXATE SODIUM [Concomitant]
     Route: 065
  4. FOLINIC ACID [Concomitant]
     Route: 065

REACTIONS (4)
  - DYSPNOEA [None]
  - ERYTHEMA [None]
  - INFUSION RELATED REACTION [None]
  - STRIDOR [None]
